FAERS Safety Report 8571346-0 (Version None)
Quarter: 2012Q3

REPORT INFORMATION
  Report Type: 
  Country: None (occurrence: None)
  Receive Date: 20120806
  Receipt Date: 20120725
  Transmission Date: 20120928
  Serious: No
  Sender: FDA-Public Use
  Company Number: US-ASTRAZENECA-2012SE42938

PATIENT
  Age: 53 Year
  Sex: Male
  Weight: 95.3 kg

DRUGS (1)
  1. SYMBICORT [Suspect]
     Indication: CHRONIC OBSTRUCTIVE PULMONARY DISEASE
     Dosage: 160 /4.5 UG TWICE A DAY
     Route: 055
     Dates: start: 20120612

REACTIONS (2)
  - OFF LABEL USE [None]
  - DYSGEUSIA [None]
